FAERS Safety Report 9147521 (Version 4)
Quarter: 2016Q1

REPORT INFORMATION
  Report Type: Spontaneous
  Country: IT (occurrence: IT)
  Receive Date: 20130307
  Receipt Date: 20160205
  Transmission Date: 20160526
  Serious: Yes (Hospitalization, Other)
  Sender: FDA-Public Use
  Company Number: IT-BRISTOL-MYERS SQUIBB COMPANY-17422411

PATIENT
  Age: 82 Year
  Sex: Female

DRUGS (12)
  1. EUTIROX [Concomitant]
     Active Substance: LEVOTHYROXINE SODIUM
     Indication: PRODUCT USED FOR UNKNOWN INDICATION
     Dosage: TABS
     Route: 065
  2. LASIX [Concomitant]
     Active Substance: FUROSEMIDE
     Indication: PRODUCT USED FOR UNKNOWN INDICATION
     Dosage: FORMULATION-LASIX 25 MG TABS
     Route: 065
  3. CARDURA [Concomitant]
     Active Substance: DOXAZOSIN MESYLATE
     Indication: PRODUCT USED FOR UNKNOWN INDICATION
     Dosage: CARDURA 4 MG TABS
     Route: 065
  4. FERRO GRAD [Concomitant]
     Indication: PRODUCT USED FOR UNKNOWN INDICATION
     Dosage: FERRO GRAD FOLIC TABS
     Route: 065
  5. COUMADIN [Suspect]
     Active Substance: WARFARIN SODIUM
     Indication: MYOCARDIAL ISCHAEMIA
     Dosage: LAST DOSE-01JAN2013  1DF=1 UNIT  INTER FOR 3 DAYS.ON 24-DEC - ? TAB FOR 3 DAYS,? TABLET FROM 20DAYS
     Route: 048
     Dates: start: 20030101, end: 20130101
  6. MINITRAN [Concomitant]
     Active Substance: NITROGLYCERIN
     Indication: PRODUCT USED FOR UNKNOWN INDICATION
     Dosage: 5 MG, INTERMITTENT
     Route: 062
  7. PANTORC [Concomitant]
     Active Substance: PANTOPRAZOLE SODIUM
     Indication: PRODUCT USED FOR UNKNOWN INDICATION
     Dosage: PANTORC 20MG TABS
     Route: 065
  8. KARVEA [Concomitant]
     Active Substance: IRBESARTAN
     Indication: PRODUCT USED FOR UNKNOWN INDICATION
     Dosage: KARVEA 300 MG TABS
     Route: 065
  9. ARIMIDEX [Interacting]
     Active Substance: ANASTROZOLE
     Indication: AXILLARY MASS
     Dosage: LAST DOSE-01JAN2013  TABS
     Route: 048
     Dates: start: 20121221
  10. NORVASC [Concomitant]
     Active Substance: AMLODIPINE BESYLATE
     Indication: PRODUCT USED FOR UNKNOWN INDICATION
     Dosage: NORVASC 5MG TABS
     Route: 065
  11. FOLINA [Concomitant]
     Active Substance: FOLIC ACID
     Indication: PRODUCT USED FOR UNKNOWN INDICATION
     Dosage: FOLINA 5MG TABS
     Route: 065
  12. DEURSIL [Concomitant]
     Active Substance: URSODIOL
     Indication: PRODUCT USED FOR UNKNOWN INDICATION
     Dosage: DEURSIL 450 MG TABS
     Route: 065

REACTIONS (10)
  - Haematuria [Recovering/Resolving]
  - Cerebrovascular accident [Unknown]
  - Hypertransaminasaemia [Recovering/Resolving]
  - Drug interaction [Unknown]
  - Activated partial thromboplastin time prolonged [Recovering/Resolving]
  - Thrombophlebitis [Unknown]
  - Cholestasis [Recovering/Resolving]
  - Hyperbilirubinaemia [Recovering/Resolving]
  - Infection [Unknown]
  - Off label use [Unknown]

NARRATIVE: CASE EVENT DATE: 2003
